FAERS Safety Report 8949377 (Version 1)
Quarter: 2012Q4

REPORT INFORMATION
  Report Type: Report from Study
  Country: DZ (occurrence: DZ)
  Receive Date: 20121206
  Receipt Date: 20121206
  Transmission Date: 20130627
  Serious: Yes (Other)
  Sender: FDA-Public Use
  Company Number: DZ-ROCHE-1163963

PATIENT
  Age: 66 Year

DRUGS (5)
  1. RITUXIMAB [Suspect]
     Indication: NON-HODGKIN^S LYMPHOMA
     Route: 065
  2. ONCOVIN [Concomitant]
     Indication: NON-HODGKIN^S LYMPHOMA
  3. CYCLOPHOSPHAMIDE [Concomitant]
     Indication: NON-HODGKIN^S LYMPHOMA
  4. ADRIAMYCIN [Concomitant]
     Indication: NON-HODGKIN^S LYMPHOMA
  5. PREDNISONE [Concomitant]
     Indication: NON-HODGKIN^S LYMPHOMA

REACTIONS (10)
  - Hyporeflexia [Unknown]
  - Lung infection [Recovering/Resolving]
  - Constipation [Unknown]
  - Anaemia [Recovering/Resolving]
  - Pain [Unknown]
  - Hypokinesia [Unknown]
  - Paraesthesia [Unknown]
  - Mucosal inflammation [Recovering/Resolving]
  - Bone pain [Unknown]
  - Alopecia [Unknown]
